FAERS Safety Report 4816615-2 (Version None)
Quarter: 2005Q4

REPORT INFORMATION
  Report Type: 
  Country: None (occurrence: None)
  Receive Date: 20051028
  Receipt Date: 20051017
  Transmission Date: 20060501
  Serious: Yes (Hospitalization)
  Sender: FDA-Public Use
  Company Number: SUSI-2005-00773

PATIENT
  Age: 34 Year
  Sex: Male
  Weight: 113.4 kg

DRUGS (2)
  1. ADDERALL XR 10 [Suspect]
     Dosage: 10 MG, 1X/DAY:QD
     Dates: start: 20050901, end: 20050901
  2. ANTI-HISTAMINE TAB [Concomitant]

REACTIONS (3)
  - BRAIN STEM HAEMORRHAGE [None]
  - CEREBROVASCULAR ACCIDENT [None]
  - RETINAL TEAR [None]
